FAERS Safety Report 6180786-9 (Version None)
Quarter: 2009Q2

REPORT INFORMATION
  Report Type: 
  Country: None (occurrence: None)
  Receive Date: 20090506
  Receipt Date: 20090505
  Transmission Date: 20091009
  Serious: Yes (Other)
  Sender: FDA-Public Use
  Company Number: US-BIOGENIDEC-2009BI010738

PATIENT
  Age: 47 Year
  Sex: Female

DRUGS (4)
  1. AVONEX [Suspect]
     Indication: MULTIPLE SCLEROSIS
     Route: 030
     Dates: start: 20020103
  2. AVONEX [Suspect]
     Route: 030
  3. DEPAKOTE [Concomitant]
     Indication: CONVULSION
     Dates: start: 20040128
  4. LYRICA [Concomitant]
     Indication: DRUG USE FOR UNKNOWN INDICATION
     Dates: start: 20061019, end: 20080904

REACTIONS (2)
  - CONVULSION [None]
  - CRANIOTOMY [None]
